FAERS Safety Report 14705379 (Version 1)
Quarter: 2018Q2

REPORT INFORMATION
  Report Type: Other
  Country: FR (occurrence: FR)
  Receive Date: 20180402
  Receipt Date: 20180402
  Transmission Date: 20180711
  Serious: Yes (Death, Other)
  Sender: FDA-Public Use
  Company Number: FR-ASTELLAS-2018US016241

PATIENT
  Age: 48 Year
  Sex: Female
  Weight: 53 kg

DRUGS (1)
  1. AMPHOTERICIN B, LIPOSOME [Suspect]
     Active Substance: AMPHOTERICIN B
     Indication: SYSTEMIC CANDIDA
     Route: 041
     Dates: start: 20180115, end: 20180223

REACTIONS (3)
  - Lipase increased [Unknown]
  - Atrioventricular block [Unknown]
  - Thrombocytopenia [Unknown]

NARRATIVE: CASE EVENT DATE: 20180220
